FAERS Safety Report 17746785 (Version 2)
Quarter: 2020Q2

REPORT INFORMATION
  Report Type: Spontaneous
  Country: US (occurrence: US)
  Receive Date: 20200505
  Receipt Date: 20200515
  Transmission Date: 20200714
  Serious: No
  Sender: FDA-Public Use
  Company Number: US-CELGENEUS-USA-20200409570

PATIENT
  Sex: Female

DRUGS (1)
  1. OTEZLA [Suspect]
     Active Substance: APREMILAST
     Indication: PSORIASIS
     Dosage: 60 MILLIGRAM
     Route: 048
     Dates: start: 20200110

REACTIONS (6)
  - Sinusitis [Recovering/Resolving]
  - Abdominal pain upper [Recovering/Resolving]
  - Immune system disorder [Recovering/Resolving]
  - Influenza [Recovering/Resolving]
  - Feeling abnormal [Recovering/Resolving]
  - Diarrhoea [Recovering/Resolving]

NARRATIVE: CASE EVENT DATE: 2020
